FAERS Safety Report 6987628-X (Version None)
Quarter: 2010Q3

REPORT INFORMATION
  Report Type: 
  Country: None (occurrence: None)
  Receive Date: 20100916
  Receipt Date: 20100913
  Transmission Date: 20110219
  Serious: Yes (Life-Threatening)
  Sender: FDA-Public Use
  Company Number: IT-CELGENEUS-083-21880-10071482

PATIENT
  Sex: Male
  Weight: 66 kg

DRUGS (8)
  1. REVLIMID [Suspect]
     Indication: MULTIPLE MYELOMA
     Route: 048
     Dates: start: 20091209
  2. REVLIMID [Suspect]
     Route: 048
     Dates: start: 20100603, end: 20100611
  3. DEXAMETHASONE [Suspect]
     Indication: MULTIPLE MYELOMA
     Route: 048
     Dates: start: 20091209, end: 20100407
  4. DEXAMETHASONE [Suspect]
     Route: 048
     Dates: start: 20100412, end: 20100417
  5. CLEXANE [Concomitant]
     Indication: THROMBOSIS
     Route: 058
     Dates: start: 20100601
  6. OMEPRAZOLE [Concomitant]
     Route: 048
     Dates: start: 20100601
  7. NEORECORMON [Concomitant]
     Route: 058
     Dates: start: 20100601
  8. TORVAST [Concomitant]
     Route: 048
     Dates: start: 20100601

REACTIONS (1)
  - ISCHAEMIC STROKE [None]
